FAERS Safety Report 7720195-1 (Version None)
Quarter: 2011Q3

REPORT INFORMATION
  Report Type: 
  Country: None (occurrence: None)
  Receive Date: 20110831
  Receipt Date: 20110819
  Transmission Date: 20111222
  Serious: Yes (Hospitalization)
  Sender: FDA-Public Use
  Company Number: DE-UCBSA-039746

PATIENT
  Sex: Female

DRUGS (3)
  1. VALPROIC ACID [Concomitant]
  2. KEPPRA [Concomitant]
  3. VIMPAT [Suspect]

REACTIONS (1)
  - GRAND MAL CONVULSION [None]
